FAERS Safety Report 4284604-5 (Version None)
Quarter: 2004Q1

REPORT INFORMATION
  Report Type: 
  Country: None (occurrence: None)
  Receive Date: 20040130
  Receipt Date: 20040114
  Transmission Date: 20041129
  Serious: Yes (Hospitalization)
  Sender: FDA-Public Use
  Company Number: REL-INN-103

PATIENT
  Age: 38 Year
  Sex: Female
  Weight: 57.1532 kg

DRUGS (4)
  1. INNOPRAN XL [Suspect]
     Indication: HYPERTENSION
     Dosage: 80 MG QD ORAL
     Route: 048
     Dates: start: 20031029, end: 20031105
  2. INNOPRAN XL [Suspect]
     Indication: MIGRAINE
     Dosage: 80 MG QD ORAL
     Route: 048
     Dates: start: 20031029, end: 20031105
  3. EXCEDRIN [Concomitant]
  4. ASPIRIN [Concomitant]

REACTIONS (7)
  - BALANCE DISORDER [None]
  - CONVERSION DISORDER [None]
  - DYSPHONIA [None]
  - HYPERTENSION [None]
  - HYPOTENSION [None]
  - STRESS SYMPTOMS [None]
  - URINARY TRACT INFECTION [None]
